FAERS Safety Report 20463011 (Version 2)
Quarter: 2022Q1

REPORT INFORMATION
  Report Type: Spontaneous
  Country: CN (occurrence: CN)
  Receive Date: 20220211
  Receipt Date: 20220302
  Transmission Date: 20220423
  Serious: Yes (Hospitalization, Other)
  Sender: FDA-Public Use
  Company Number: CN-MLMSERVICE-20220127-3339164-1

PATIENT
  Age: 50 Year
  Sex: Female
  Weight: 60.9 kg

DRUGS (1)
  1. DEXAMETHASONE [Suspect]
     Active Substance: DEXAMETHASONE
     Indication: Product used for unknown indication
     Dosage: TAKING HIGH-DOSE DEXAMETHASONE AT LEAST 2 MG DAILY; 2-5MG PER DAY
     Route: 048
     Dates: start: 201504, end: 201805

REACTIONS (7)
  - Cerebrospinal fluid leakage [Recovered/Resolved]
  - Empty sella syndrome [Not Recovered/Not Resolved]
  - Condition aggravated [Unknown]
  - Intracranial pressure increased [Not Recovered/Not Resolved]
  - Cushing^s syndrome [Recovered/Resolved]
  - Renal tuberculosis [Recovered/Resolved]
  - Intentional product misuse [Unknown]

NARRATIVE: CASE EVENT DATE: 20150101
